FAERS Safety Report 25795233 (Version 2)
Quarter: 2025Q3

REPORT INFORMATION
  Report Type: Spontaneous
  Country: EU (occurrence: EU)
  Receive Date: 20250912
  Receipt Date: 20250916
  Transmission Date: 20251020
  Serious: Yes (Other)
  Sender: ROCHE
  Company Number: EU-ROCHE-10000384008

PATIENT
  Age: 50 Year
  Sex: Female

DRUGS (1)
  1. RITUXIMAB [Suspect]
     Active Substance: RITUXIMAB
     Indication: Eosinophilic granulomatosis with polyangiitis
     Dosage: FOR 4 WEEKS
     Route: 065

REACTIONS (3)
  - Coronavirus infection [Recovered/Resolved]
  - Osteoporotic fracture [Recovered/Resolved]
  - Nosocomial infection [Recovered/Resolved]
